FAERS Safety Report 9015397 (Version 1)
Quarter: 2013Q1

REPORT INFORMATION
  Report Type: Spontaneous
  Country: US (occurrence: None)
  Receive Date: 20130103
  Receipt Date: 20130103
  Transmission Date: 20140127
  Serious: Yes (Hospitalization)
  Sender: FDA-Public Use
  Company Number: TPA2012A12042

PATIENT
  Age: 55 Year
  Sex: Male

DRUGS (2)
  1. ADENURIC (FEBUXOSTAT) [Suspect]
     Indication: TUMOUR LYSIS SYNDROME
     Dosage: UNK, UNK.
     Route: 048
     Dates: start: 20121119
  2. ALLOPURINOL [Suspect]
     Indication: TUMOUR LYSIS SYNDROME
     Dosage: UNK.
     Route: 048
     Dates: start: 20121119

REACTIONS (1)
  - Pneumonia [None]
